FAERS Safety Report 4264203-1 (Version None)
Quarter: 2004Q1

REPORT INFORMATION
  Report Type: 
  Country: None (occurrence: None)
  Receive Date: 20040106
  Receipt Date: 20030205
  Transmission Date: 20041129
  Serious: Yes (Death, Life-Threatening, Hospitalization)
  Sender: FDA-Public Use
  Company Number: US-BRISTOL-MYERS SQUIBB COMPANY-12175824

PATIENT
  Age: 73 Year
  Sex: Female
  Weight: 65 kg

DRUGS (5)
  1. PACLITAXEL [Suspect]
     Indication: BLADDER CANCER
     Dates: start: 20021111, end: 20030131
  2. CISPLATIN [Suspect]
     Indication: BLADDER CANCER
     Dates: start: 20021101, end: 20030124
  3. GEMCITABINE [Suspect]
     Indication: BLADDER CANCER
     Dates: start: 20021101, end: 20030131
  4. MOTRIN [Concomitant]
     Route: 048
     Dates: start: 20030201
  5. LEUKINE [Concomitant]
     Route: 058
     Dates: start: 20030201

REACTIONS (3)
  - BLADDER NECROSIS [None]
  - MUSCLE CRAMP [None]
  - URINARY TRACT INFECTION [None]
